FAERS Safety Report 6427037-5 (Version None)
Quarter: 2009Q4

REPORT INFORMATION
  Report Type: 
  Country: None (occurrence: None)
  Receive Date: 20091104
  Receipt Date: 20091022
  Transmission Date: 20100525
  Serious: Yes (Other)
  Sender: FDA-Public Use
  Company Number: FR-ELI_LILLY_AND_COMPANY-FR200909004929

PATIENT
  Age: 61 Year
  Sex: Female
  Weight: 61 kg

DRUGS (7)
  1. ZYPREXA [Suspect]
     Indication: DELUSION
     Dosage: 10 MG, DAILY (1/D)
     Route: 048
     Dates: start: 20090529, end: 20090529
  2. XANAX [Concomitant]
     Indication: ANXIETY
     Dosage: 1.5 MG, DAILY (1/D)
     Route: 048
     Dates: start: 20090526, end: 20090719
  3. SEROPLEX [Concomitant]
     Indication: DEPRESSION
     Dosage: 20 MG, DAILY (1/D)
     Route: 048
     Dates: start: 20090526, end: 20090809
  4. IMOVANE [Concomitant]
     Indication: SLEEP DISORDER
     Dosage: 7.5 MG, DAILY (1/D)
     Route: 048
     Dates: start: 20090526
  5. THERALENE [Concomitant]
     Indication: SLEEP DISORDER
     Dosage: 10 MG, DAILY (1/D)
     Route: 048
     Dates: start: 20090526
  6. ZANDIL [Concomitant]
     Indication: HYPERTENSION
     Dosage: UNK, UNKNOWN
     Route: 048
  7. NEBILOX [Concomitant]
     Indication: HYPERTENSION
     Dosage: 5 MG, DAILY (1/D)
     Route: 048

REACTIONS (4)
  - FALL [None]
  - INJURY [None]
  - PRESYNCOPE [None]
  - THYMUS DISORDER [None]
